FAERS Safety Report 4320854-7 (Version None)
Quarter: 2004Q1

REPORT INFORMATION
  Report Type: 
  Country: None (occurrence: None)
  Receive Date: 20040318
  Receipt Date: 20040305
  Transmission Date: 20041129
  Serious: Yes (Death)
  Sender: FDA-Public Use
  Company Number: A0493483A

PATIENT
  Age: 61 Year
  Sex: Female

DRUGS (2)
  1. ZANTAC [Suspect]
     Indication: DYSPEPSIA
     Dosage: AS REQUIRED / ORAL
     Route: 048
  2. THYROXINE SODIUM [Concomitant]

REACTIONS (9)
  - ARRHYTHMIA [None]
  - CARDIAC ARREST [None]
  - CORONARY ARTERY ATHEROSCLEROSIS [None]
  - FIBROSIS [None]
  - LEFT VENTRICULAR FAILURE [None]
  - PULMONARY CONGESTION [None]
  - PULMONARY OEDEMA [None]
  - SUDDEN DEATH [None]
  - VENTRICULAR HYPERTROPHY [None]
